FAERS Safety Report 4937094-0 (Version None)
Quarter: 2006Q1

REPORT INFORMATION
  Report Type: 
  Country: None (occurrence: None)
  Receive Date: 20060302
  Receipt Date: 20060221
  Transmission Date: 20060701
  Serious: Yes (Hospitalization)
  Sender: FDA-Public Use
  Company Number: HQWYE301228OCT05

PATIENT
  Age: 77 Year
  Sex: Male

DRUGS (11)
  1. CORDARONE [Suspect]
     Indication: TACHYCARDIA
     Dosage: 172 TABLETS WITHIN 2 + 1/2  MONTH   ORFAL
     Route: 048
     Dates: start: 20031101, end: 20040201
  2. COVERSYL (PERINDOPRIL) [Concomitant]
  3. PREVISCAN (FLUINDIONE) [Concomitant]
  4. GINKGO TREE LEAVES (GINKGO TREE LEAVES EXTRACE) [Concomitant]
  5. ISOSORBIDE MONONITRATE [Concomitant]
  6. PLAVIX [Concomitant]
  7. SOTALOL HCL [Concomitant]
  8. AMARYL [Concomitant]
  9. GLUCOPHAGE [Concomitant]
  10. DIAMICRON (GLICLAZIDE) [Concomitant]
  11. PERMIXON (SERENOA REPENS) [Concomitant]

REACTIONS (10)
  - DIABETES MELLITUS [None]
  - DRUG PRESCRIBING ERROR [None]
  - FATIGUE [None]
  - HYPERTHYROIDISM [None]
  - MYELOPATHY [None]
  - NECROSIS [None]
  - PHOTOPHOBIA [None]
  - PHOTOSENSITIVITY REACTION [None]
  - SPINAL CORD DISORDER [None]
  - WEIGHT DECREASED [None]
